FAERS Safety Report 4990850-5 (Version None)
Quarter: 2006Q2

REPORT INFORMATION
  Report Type: 
  Country: None (occurrence: None)
  Receive Date: 20060428
  Receipt Date: 20060424
  Transmission Date: 20061013
  Serious: Yes (Hospitalization)
  Sender: FDA-Public Use
  Company Number: HQWYE796814FEB06

PATIENT
  Age: 41 Year
  Sex: Male

DRUGS (2)
  1. PRIMATENE MIST [Suspect]
     Indication: ASTHMA
  2. TRICYCLIC ANTIDEPRESSANTS (TRICYCLIC ANTIDEPRESSANTS) [Suspect]

REACTIONS (12)
  - ALANINE AMINOTRANSFERASE INCREASED [None]
  - ASTHMA [None]
  - BLOOD BILIRUBIN INCREASED [None]
  - BRONCHOSPASM [None]
  - CIRCULATORY COLLAPSE [None]
  - DRUG INEFFECTIVE [None]
  - HEART RATE INCREASED [None]
  - METABOLIC ACIDOSIS [None]
  - PURULENT DISCHARGE [None]
  - RESPIRATORY ARREST [None]
  - RESPIRATORY DISTRESS [None]
  - STAPHYLOCOCCAL INFECTION [None]
